FAERS Safety Report 7764299-6 (Version None)
Quarter: 2011Q3

REPORT INFORMATION
  Report Type: 
  Country: None (occurrence: None)
  Receive Date: 20110921
  Receipt Date: 20110912
  Transmission Date: 20111222
  Serious: Yes (Hospitalization, Other)
  Sender: FDA-Public Use
  Company Number: US-PURDUE-USA-2011-0074719

PATIENT
  Age: 18 Year
  Sex: Male

DRUGS (1)
  1. TRAMADOL HCL [Suspect]
     Indication: PRODUCT USED FOR UNKNOWN INDICATION
     Dosage: UNK

REACTIONS (4)
  - RHABDOMYOLYSIS [None]
  - MULTI-ORGAN FAILURE [None]
  - TOXICITY TO VARIOUS AGENTS [None]
  - RENAL FAILURE ACUTE [None]
